FAERS Safety Report 4588814-9 (Version None)
Quarter: 2005Q1

REPORT INFORMATION
  Report Type: 
  Country: None (occurrence: None)
  Receive Date: 20050216
  Receipt Date: 20050205
  Transmission Date: 20050727
  Serious: Yes (Hospitalization)
  Sender: FDA-Public Use
  Company Number: 2005025681

PATIENT
  Sex: Male
  Weight: 92.9874 kg

DRUGS (1)
  1. DEPO-TESTOSTERONE [Suspect]
     Indication: ANDROGEN DEFICIENCY
     Dosage: (200 MG, ONE INJECTION EVERY 10 DAYS)
     Dates: start: 20020101

REACTIONS (7)
  - ARTHRALGIA [None]
  - DEPRESSION [None]
  - HEADACHE [None]
  - INCOHERENT [None]
  - INTERNATIONAL NORMALISED RATIO ABNORMAL [None]
  - PHARMACEUTICAL PRODUCT COMPLAINT [None]
  - VENTRICULAR TACHYCARDIA [None]
